FAERS Safety Report 5798298-0 (Version None)
Quarter: 2008Q3

REPORT INFORMATION
  Report Type: 
  Country: None (occurrence: None)
  Receive Date: 20080702
  Receipt Date: 20080626
  Transmission Date: 20090109
  Serious: Yes (Other)
  Sender: FDA-Public Use
  Company Number: US-JNJFOC-20031205595

PATIENT
  Sex: Female
  Weight: 66.23 kg

DRUGS (2)
  1. FLOXIN [Suspect]
     Indication: CYSTITIS
     Route: 048
  2. FLOXIN [Suspect]
     Indication: URINARY TRACT INFECTION
     Route: 048

REACTIONS (37)
  - ABDOMINAL DISTENSION [None]
  - ABDOMINAL PAIN [None]
  - ABNORMAL SENSATION IN EYE [None]
  - ADVERSE EVENT [None]
  - ANOREXIA [None]
  - ARTHRALGIA [None]
  - ARTHROPATHY [None]
  - BLOOD PRESSURE DECREASED [None]
  - CONFUSIONAL STATE [None]
  - DIZZINESS [None]
  - DROOLING [None]
  - DYSPHONIA [None]
  - DYSPNOEA [None]
  - DYSURIA [None]
  - GINGIVAL PAIN [None]
  - HALLUCINATION [None]
  - HEADACHE [None]
  - HYPOAESTHESIA [None]
  - HYPOAESTHESIA FACIAL [None]
  - INSOMNIA [None]
  - JOINT STIFFNESS [None]
  - MUSCLE SPASMS [None]
  - MUSCULAR WEAKNESS [None]
  - MUSCULOSKELETAL STIFFNESS [None]
  - NECK PAIN [None]
  - NERVOUSNESS [None]
  - OEDEMA PERIPHERAL [None]
  - PAIN [None]
  - PARAESTHESIA [None]
  - SKIN ODOUR ABNORMAL [None]
  - TENDONITIS [None]
  - TINNITUS [None]
  - TREMOR [None]
  - URINARY INCONTINENCE [None]
  - VAGINAL DISCHARGE [None]
  - VISUAL IMPAIRMENT [None]
  - WEIGHT DECREASED [None]
